FAERS Safety Report 9216173 (Version 2)
Quarter: 2013Q2

REPORT INFORMATION
  Report Type: Spontaneous
  Country: ES (occurrence: None)
  Receive Date: 20130403
  Receipt Date: 20130429
  Transmission Date: 20140414
  Serious: Yes (Other)
  Sender: FDA-Public Use
  Company Number: 2013DEPES00523

PATIENT
  Age: 55 Year
  Sex: Female

DRUGS (1)
  1. DEPOCYTE (CYTARABINE) LIPOSOME INJECTABLE SUSPENSION, MG [Suspect]
     Indication: NON-HODGKIN^S LYMPHOMA
     Dosage: 50 MG/15 DAYS
     Route: 037
     Dates: start: 20120510, end: 20120830

REACTIONS (2)
  - Papilloedema [None]
  - Optic disc haemorrhage [None]
